FAERS Safety Report 17616947 (Version 9)
Quarter: 2024Q2

REPORT INFORMATION
  Report Type: Report from Study
  Country: CA (occurrence: CA)
  Receive Date: 20200402
  Receipt Date: 20240621
  Transmission Date: 20240715
  Serious: Yes (Other)
  Sender: FDA-Public Use
  Company Number: None

PATIENT
  Age: 50 Year
  Sex: Male

DRUGS (5)
  1. COSENTYX [Suspect]
     Active Substance: SECUKINUMAB
     Indication: Psoriasis
     Dosage: 300 MG, QMO
     Route: 058
     Dates: start: 20200122
  2. COSENTYX [Suspect]
     Active Substance: SECUKINUMAB
     Dosage: UNK, QW
     Route: 058
     Dates: start: 20200212
  3. COSENTYX [Suspect]
     Active Substance: SECUKINUMAB
     Dosage: 300 MG, QMO
     Route: 058
  4. BIAXIN [Concomitant]
     Active Substance: CLARITHROMYCIN
     Indication: Product used for unknown indication
     Dosage: 500 MG, BID (7 DAYS)
     Route: 065
     Dates: start: 20200215
  5. REACTINE [Concomitant]
     Indication: Product used for unknown indication
     Dosage: 1 DOSAGE FORM BEFORE
     Route: 065

REACTIONS (12)
  - Tympanic membrane perforation [Unknown]
  - Ear infection [Unknown]
  - Headache [Unknown]
  - Hypoacusis [Unknown]
  - Decreased immune responsiveness [Unknown]
  - Pruritus [Unknown]
  - Psoriasis area severity index increased [Unknown]
  - Skin irritation [Unknown]
  - Pain of skin [Unknown]
  - Psoriasis [Unknown]
  - Inappropriate schedule of product administration [Unknown]
  - Local reaction [Unknown]

NARRATIVE: CASE EVENT DATE: 20200122
